FAERS Safety Report 9526219 (Version 2)
Quarter: 2013Q3

REPORT INFORMATION
  Report Type: Spontaneous
  Country: CN (occurrence: CN)
  Receive Date: 20130916
  Receipt Date: 20130924
  Transmission Date: 20140515
  Serious: Yes (Other)
  Sender: FDA-Public Use
  Company Number: CN-PFIZER INC-2013261646

PATIENT
  Age: 23 Year
  Sex: 0

DRUGS (2)
  1. CYTOSAR [Suspect]
     Dosage: 3 G, SINGLE
     Dates: start: 20130910, end: 20130910
  2. METHOTREXATE [Concomitant]
     Dosage: UNK
     Dates: start: 20130909

REACTIONS (4)
  - Blindness [Recovering/Resolving]
  - Renal impairment [Recovering/Resolving]
  - Hepatic lesion [Recovering/Resolving]
  - Pyrexia [Recovered/Resolved]
